FAERS Safety Report 4512918-X (Version None)
Quarter: 2004Q4

REPORT INFORMATION
  Report Type: 
  Country: None (occurrence: None)
  Receive Date: 20041123
  Receipt Date: 20041123
  Transmission Date: 20050328
  Serious: Yes (Other)
  Sender: FDA-Public Use
  Company Number: None

PATIENT
  Age: 31 Year
  Sex: Female
  Weight: 81.466 kg

DRUGS (1)
  1. TRINESSA 28 [Suspect]
     Indication: ORAL CONTRACEPTION
     Dosage: ONE PO QD
     Route: 048

REACTIONS (2)
  - MIGRAINE [None]
  - PHARMACEUTICAL PRODUCT COMPLAINT [None]
